FAERS Safety Report 7299999-8 (Version None)
Quarter: 2011Q1

REPORT INFORMATION
  Report Type: 
  Country: None (occurrence: None)
  Receive Date: 20110217
  Receipt Date: 20110208
  Transmission Date: 20110831
  Serious: Yes (Other)
  Sender: FDA-Public Use
  Company Number: US-ASTRAZENECA-2011SE05530

PATIENT
  Age: 42 Year
  Sex: Male

DRUGS (4)
  1. ABILIFY [Suspect]
     Route: 065
  2. SEROQUEL [Suspect]
     Route: 048
  3. GEODON [Suspect]
     Route: 065
  4. RISPERDAL [Suspect]
     Route: 065

REACTIONS (2)
  - DRUG INEFFECTIVE [None]
  - AGRANULOCYTOSIS [None]
